FAERS Safety Report 8015871-X (Version None)
Quarter: 2011Q4

REPORT INFORMATION
  Report Type: 
  Country: None (occurrence: None)
  Receive Date: 20111230
  Receipt Date: 20111006
  Transmission Date: 20120403
  Serious: Yes (Other)
  Sender: FDA-Public Use
  Company Number: KR-BAYER-2011-095887

PATIENT
  Age: 56 Year
  Sex: Female

DRUGS (1)
  1. ASPIRIN [Suspect]
     Dosage: 1 DF, ONCE
     Route: 048
     Dates: start: 20111005, end: 20111005

REACTIONS (2)
  - TINNITUS [None]
  - DEAFNESS TRANSITORY [None]
